FAERS Safety Report 7052767-4 (Version None)
Quarter: 2010Q4

REPORT INFORMATION
  Report Type: 
  Country: None (occurrence: None)
  Receive Date: 20101015
  Receipt Date: 20100224
  Transmission Date: 20110411
  Serious: Yes (Other)
  Sender: FDA-Public Use
  Company Number: 2010SP012619

PATIENT
  Age: 27 Year
  Sex: Female
  Weight: 111.1313 kg

DRUGS (1)
  1. NUVARING [Suspect]
     Indication: CONTRACEPTION
     Dates: start: 20071201, end: 20080201

REACTIONS (8)
  - ABORTION SPONTANEOUS [None]
  - CEREBROVASCULAR ACCIDENT [None]
  - DRUG EXPOSURE BEFORE PREGNANCY [None]
  - HYPERTENSION [None]
  - MIGRAINE [None]
  - OVARIAN CYST [None]
  - PREGNANCY [None]
  - THROMBOSIS [None]
